FAERS Safety Report 23673665 (Version 1)
Quarter: 2024Q1

REPORT INFORMATION
  Report Type: Spontaneous
  Country: US (occurrence: US)
  Receive Date: 20240326
  Receipt Date: 20240326
  Transmission Date: 20240410
  Serious: No
  Sender: FDA-Public Use
  Company Number: US-TEVA-VS-3165299

PATIENT
  Age: 30 Year
  Sex: Female

DRUGS (16)
  1. FENTANYL [Suspect]
     Active Substance: FENTANYL\FENTANYL CITRATE
     Indication: Product used for unknown indication
     Route: 065
  2. IRON [Suspect]
     Active Substance: IRON
     Indication: Anaemia
  3. BUPRENORPHINE\NALOXONE [Suspect]
     Active Substance: BUPRENORPHINE\NALOXONE
     Indication: Drug use disorder
     Dosage: FORMULATION: FILM (LOW-DOSE BUPRENORPHINE INITIATION SCHEDULE) DAY 5
     Route: 065
  4. BUPRENORPHINE\NALOXONE [Suspect]
     Active Substance: BUPRENORPHINE\NALOXONE
     Indication: Drug use disorder
     Dosage: DOSAGE 1/2 DF TWICE DAILY ON DAY5 (POST REINITIATION AT HOME); FORMULATION: FILM
     Route: 065
  5. BUPRENORPHINE\NALOXONE [Suspect]
     Active Substance: BUPRENORPHINE\NALOXONE
     Indication: Drug use disorder
     Dosage: DOSAGE: ? DOSAGE FORM (DF) EVERY 3 HOURS ON DAY 1; FORMULATION-FILM
     Route: 065
  6. BUPRENORPHINE\NALOXONE [Suspect]
     Active Substance: BUPRENORPHINE\NALOXONE
     Indication: Drug use disorder
     Dosage: DAY 6 (POST REINITIATION AT HOME); FORMULATION: FILM
     Route: 065
  7. BUPRENORPHINE\NALOXONE [Suspect]
     Active Substance: BUPRENORPHINE\NALOXONE
     Indication: Drug use disorder
     Dosage: DAY 6: DURING HER SECOND INPATIENT INDUCTION
     Route: 065
  8. BUPRENORPHINE\NALOXONE [Suspect]
     Active Substance: BUPRENORPHINE\NALOXONE
     Indication: Drug use disorder
     Dosage: FORMULATION: FILM ON DAY 4 (POST REINITIATION AT HOME)
     Route: 065
  9. BUPRENORPHINE\NALOXONE [Suspect]
     Active Substance: BUPRENORPHINE\NALOXONE
     Indication: Drug use disorder
     Dosage: DOSAGE ? DF ON DAY1 (POST REINITIATION AT HOME); FORMULATION: FILM
     Route: 065
  10. BUPRENORPHINE\NALOXONE [Suspect]
     Active Substance: BUPRENORPHINE\NALOXONE
     Indication: Drug use disorder
     Dosage: FORMULATION: FILM (DURING HER SECOND INPATIENT INDUCTION) DAY 4
     Route: 065
  11. BUPRENORPHINE\NALOXONE [Suspect]
     Active Substance: BUPRENORPHINE\NALOXONE
     Indication: Drug use disorder
     Dosage: DOSAGE ? DF TWICE DAILY ON DAY2 (POST REINITIATION AT HOME); FORMULATION: FILM
     Route: 065
  12. BUPRENORPHINE\NALOXONE [Suspect]
     Active Substance: BUPRENORPHINE\NALOXONE
     Indication: Drug use disorder
     Dosage: DOSAGE- ? DF ON DAY1 (DURING HER SECOND INPATIENT INDUCTION); FORMULATION: FILM
     Route: 065
  13. BUPRENORPHINE\NALOXONE [Suspect]
     Active Substance: BUPRENORPHINE\NALOXONE
     Indication: Drug use disorder
     Route: 065
  14. BUPRENORPHINE\NALOXONE [Suspect]
     Active Substance: BUPRENORPHINE\NALOXONE
     Indication: Drug use disorder
     Dosage: DOSAGE 1/2 DF TWICE DAILY ON DAY3 (POST REINITIATION AT HOME); FORMULATION: FILM
     Route: 065
  15. BUPRENORPHINE\NALOXONE [Suspect]
     Active Substance: BUPRENORPHINE\NALOXONE
     Indication: Drug use disorder
     Dosage: DOSAGE- ? DF TWICE DAILY ON DAY2 (DURING HER SECOND INPATIENT INDUCTION); FORMULATION: FILM
     Route: 065
  16. BUPRENORPHINE\NALOXONE [Suspect]
     Active Substance: BUPRENORPHINE\NALOXONE
     Indication: Drug use disorder
     Dosage: DOSAGE- 1/2 DF TWICE DAILY ON DAY3 (DURING HER SECOND INPATIENT INDUCTION); FORMULATION: FILM
     Route: 065

REACTIONS (2)
  - Maternal exposure during pregnancy [Unknown]
  - Drug withdrawal syndrome [Recovering/Resolving]
